FAERS Safety Report 9167961 (Version 3)
Quarter: 2013Q2

REPORT INFORMATION
  Report Type: Spontaneous
  Country: US (occurrence: US)
  Receive Date: 20130318
  Receipt Date: 20130508
  Transmission Date: 20140414
  Serious: Yes (Hospitalization)
  Sender: FDA-Public Use
  Company Number: US-JNJFOC-20130304483

PATIENT
  Age: 31 Year
  Sex: Female
  Weight: 68 kg

DRUGS (10)
  1. NICOTROL INHALER [Suspect]
     Indication: SMOKING CESSATION THERAPY
     Route: 055
     Dates: start: 20121027, end: 2012
  2. NICOTINE PATCH [Suspect]
     Indication: SMOKING CESSATION THERAPY
     Route: 062
     Dates: start: 2012
  3. NICOTINE GUM [Suspect]
     Indication: SMOKING CESSATION THERAPY
     Route: 048
     Dates: start: 2012
  4. ULTRAM [Concomitant]
     Route: 065
  5. PROMETHAZINE [Concomitant]
     Route: 065
  6. FLUPHENAZINE [Concomitant]
     Route: 065
  7. CLONAZEPAM [Concomitant]
     Route: 065
  8. CHLORPROMAZINE [Concomitant]
     Route: 065
  9. PROTONIX [Concomitant]
     Route: 065
  10. LAMOTRIGINE [Concomitant]
     Route: 065

REACTIONS (10)
  - Brain injury [Unknown]
  - Head injury [Unknown]
  - Thermal burn [Unknown]
  - Fall [Not Recovered/Not Resolved]
  - Malaise [Unknown]
  - Hypersensitivity [Unknown]
  - Feeling abnormal [Unknown]
  - Pruritus [Unknown]
  - Dizziness [Not Recovered/Not Resolved]
  - Nausea [Unknown]
